FAERS Safety Report 6007758-9 (Version None)
Quarter: 2008Q4

REPORT INFORMATION
  Report Type: 
  Country: None (occurrence: None)
  Receive Date: 20081217
  Receipt Date: 20080728
  Transmission Date: 20090506
  Serious: No
  Sender: FDA-Public Use
  Company Number: US-ASTRAZENECA-2008UW10974

PATIENT

DRUGS (2)
  1. CRESTOR [Suspect]
     Indication: LIPIDS INCREASED
     Dosage: CRESTOR HELD
     Route: 048
  2. CRESTOR [Suspect]
     Route: 048

REACTIONS (1)
  - PALPITATIONS [None]
